FAERS Safety Report 8367798-1 (Version None)
Quarter: 2012Q2

REPORT INFORMATION
  Report Type: 
  Country: None (occurrence: None)
  Receive Date: 20120517
  Receipt Date: 20120509
  Transmission Date: 20120825
  Serious: Yes (Life-Threatening, Hospitalization)
  Sender: FDA-Public Use
  Company Number: CH-ROCHE-1069018

PATIENT
  Age: 77 Year
  Sex: Male

DRUGS (1)
  1. LUCENTIS [Suspect]
     Indication: AGE-RELATED MACULAR DEGENERATION
     Route: 050
     Dates: start: 20120209

REACTIONS (11)
  - RENAL FAILURE [None]
  - CARDIAC DISORDER [None]
  - COGNITIVE DISORDER [None]
  - CORONARY ARTERY DISEASE [None]
  - HYPERTENSION [None]
  - BENIGN PROSTATIC HYPERPLASIA [None]
  - AORTIC STENOSIS [None]
  - MITRAL VALVE INCOMPETENCE [None]
  - GOUTY ARTHRITIS [None]
  - PERIPHERAL ARTERIAL OCCLUSIVE DISEASE [None]
  - ANAEMIA MACROCYTIC [None]
